FAERS Safety Report 9543663 (Version 5)
Quarter: 2015Q3

REPORT INFORMATION
  Report Type: Spontaneous
  Country: US (occurrence: US)
  Receive Date: 20130923
  Receipt Date: 20150717
  Transmission Date: 20151125
  Serious: Yes (Hospitalization, Disabling, Other)
  Sender: FDA-Public Use
  Company Number: US-009507513-1205USA04985

PATIENT
  Sex: Female

DRUGS (4)
  1. FOSAMAX PLUS D [Suspect]
     Active Substance: ALENDRONATE SODIUM\CHOLECALCIFEROL
     Indication: OSTEOPOROSIS
     Dosage: UNK
     Route: 048
     Dates: end: 2010
  2. ALENDRONATE SODIUM. [Suspect]
     Active Substance: ALENDRONATE SODIUM
     Indication: OSTEOPOROSIS
     Dosage: UNK
     Route: 048
     Dates: start: 20020111, end: 200910
  3. FOSAMAX [Suspect]
     Active Substance: ALENDRONATE SODIUM
     Dosage: 70 MG, UNK
     Route: 048
     Dates: end: 2010
  4. FOSAMAX [Suspect]
     Active Substance: ALENDRONATE SODIUM
     Indication: OSTEOPOROSIS
     Dosage: 10 MG, UNK
     Route: 048
     Dates: end: 2010

REACTIONS (19)
  - Uterine leiomyoma [Unknown]
  - Osteoarthritis [Unknown]
  - Femur fracture [Recovering/Resolving]
  - Fall [Recovering/Resolving]
  - Loose body in joint [Unknown]
  - Osteoarthritis [Unknown]
  - Osteoarthritis [Unknown]
  - Periprosthetic fracture [Recovering/Resolving]
  - Dyspnoea [Unknown]
  - Fall [Recovering/Resolving]
  - Osteopenia [Unknown]
  - Skeletal injury [Unknown]
  - Open reduction of fracture [Recovering/Resolving]
  - Surgery [Unknown]
  - Internal fixation of fracture [Unknown]
  - Pelvic mass [Unknown]
  - Osteopenia [Unknown]
  - Fracture delayed union [Recovering/Resolving]
  - Uterine leiomyoma [Unknown]

NARRATIVE: CASE EVENT DATE: 20030224
